FAERS Safety Report 6159257-1 (Version None)
Quarter: 2009Q2

REPORT INFORMATION
  Report Type: 
  Country: None (occurrence: None)
  Receive Date: 20090417
  Receipt Date: 20090407
  Transmission Date: 20091009
  Serious: Yes (Hospitalization)
  Sender: FDA-Public Use
  Company Number: NL-TEVA-191157ISR

PATIENT
  Sex: Male
  Weight: 80 kg

DRUGS (5)
  1. TRAMADOL HCL [Suspect]
     Indication: PAIN
     Dates: start: 20081119
  2. PREGABALIN [Suspect]
     Indication: NEURALGIA
     Dates: start: 20090116, end: 20090309
  3. FLAVOXATE HYDROCHLORIDE [Concomitant]
     Dates: start: 20090102
  4. SIMVASTATIN [Concomitant]
     Dates: start: 20090116
  5. DICLOFENAC SODIUM [Concomitant]
     Dates: start: 20070406

REACTIONS (1)
  - TRANSIENT ISCHAEMIC ATTACK [None]
